FAERS Safety Report 21098153 (Version 3)
Quarter: 2023Q1

REPORT INFORMATION
  Report Type: Report from Study
  Country: CN (occurrence: CN)
  Receive Date: 20220719
  Receipt Date: 20230113
  Transmission Date: 20230417
  Serious: Yes (Other)
  Sender: FDA-Public Use
  Company Number: CN-UCBSA-2022038341

PATIENT
  Sex: Female

DRUGS (1)
  1. LEVETIRACETAM [Suspect]
     Active Substance: LEVETIRACETAM
     Indication: Epilepsy
     Dosage: 500 MILLIGRAM, 2X/DAY (BID)
     Route: 048

REACTIONS (6)
  - Premature delivery [Unknown]
  - Cholestasis of pregnancy [Unknown]
  - Premature rupture of membranes [Unknown]
  - Placenta praevia [Unknown]
  - Foetal macrosomia [Unknown]
  - Maternal exposure during pregnancy [Unknown]
